FAERS Safety Report 5640900-8 (Version None)
Quarter: 2008Q1

REPORT INFORMATION
  Report Type: 
  Country: None (occurrence: None)
  Receive Date: 20080227
  Receipt Date: 20080222
  Transmission Date: 20080703
  Serious: Yes (Other)
  Sender: FDA-Public Use
  Company Number: B0509515A

PATIENT
  Sex: Male

DRUGS (1)
  1. SAWACILLIN [Suspect]
     Indication: DRUG USE FOR UNKNOWN INDICATION
     Dosage: 1500MG PER DAY
     Route: 048
     Dates: start: 20071208, end: 20071208

REACTIONS (3)
  - ANAL HAEMORRHAGE [None]
  - ANAL PRURITUS [None]
  - PROCTALGIA [None]
